FAERS Safety Report 5442354-3 (Version None)
Quarter: 2007Q3

REPORT INFORMATION
  Report Type: 
  Country: None (occurrence: None)
  Receive Date: 20070904
  Receipt Date: 20070817
  Transmission Date: 20080115
  Serious: Yes (Disabling)
  Sender: FDA-Public Use
  Company Number: ZA-PFIZER INC-2007068953

PATIENT
  Sex: Female
  Weight: 51 kg

DRUGS (3)
  1. PREGABALIN [Suspect]
     Indication: POST HERPETIC NEURALGIA
     Route: 048
     Dates: start: 20070617, end: 20070730
  2. LEVOTHYROXINE SODIUM [Concomitant]
  3. WARFARIN SODIUM [Concomitant]

REACTIONS (5)
  - AMNESIA [None]
  - BALANCE DISORDER [None]
  - CONFUSIONAL STATE [None]
  - OEDEMA PERIPHERAL [None]
  - TREMOR [None]
